FAERS Safety Report 21438281 (Version 2)
Quarter: 2022Q4

REPORT INFORMATION
  Report Type: Spontaneous
  Country: US (occurrence: US)
  Receive Date: 20221011
  Receipt Date: 20221122
  Transmission Date: 20230112
  Serious: No
  Sender: FDA-Public Use
  Company Number: US-ALKERMES INC.-ALK-2022-004888

PATIENT

DRUGS (1)
  1. LYBALVI [Suspect]
     Active Substance: OLANZAPINE\SAMIDORPHAN L-MALATE
     Indication: Borderline personality disorder
     Dosage: UNK
     Route: 048
     Dates: start: 2022

REACTIONS (3)
  - Mania [Unknown]
  - Anxiety [Unknown]
  - Off label use [Unknown]
